FAERS Safety Report 7378320-0 (Version None)
Quarter: 2011Q1

REPORT INFORMATION
  Report Type: 
  Country: None (occurrence: None)
  Receive Date: 20110328
  Receipt Date: 20110322
  Transmission Date: 20110831
  Serious: Yes (Death)
  Sender: FDA-Public Use
  Company Number: FR-B.I. PHARMACEUTICALS,INC./RIDGEFIELD-2011-FF-00225FF

PATIENT
  Sex: Female
  Weight: 86 kg

DRUGS (11)
  1. ACETAMINOPHEN [Suspect]
     Indication: PROCEDURAL PAIN
     Dosage: 4000 MG
     Route: 048
     Dates: start: 20110303, end: 20110306
  2. VENOFER [Concomitant]
  3. VANCOMYCINE [Concomitant]
     Indication: ANTIBIOTIC THERAPY
  4. PRADAXA [Suspect]
     Indication: KNEE ARTHROPLASTY
     Dosage: 110 MG
     Route: 048
     Dates: start: 20110302, end: 20110303
  5. NAROPIN [Concomitant]
     Dates: start: 20110303
  6. MORPHINE [Concomitant]
  7. PROFENID [Suspect]
     Indication: PROCEDURAL PAIN
     Dosage: 200 MG
     Route: 048
     Dates: start: 20110303, end: 20110306
  8. ZOPHREN [Concomitant]
     Indication: VOMITING
  9. PRADAXA [Suspect]
     Indication: THROMBOSIS PROPHYLAXIS
     Dosage: 150 MG
     Route: 048
     Dates: start: 20110303, end: 20110306
  10. QUIXIL [Concomitant]
  11. TEMESTA [Suspect]
     Dosage: 5 MG
     Route: 048
     Dates: start: 20110305, end: 20110305

REACTIONS (5)
  - SUDDEN DEATH [None]
  - HAEMOGLOBIN DECREASED [None]
  - VOMITING [None]
  - EPISTAXIS [None]
  - RENAL FAILURE [None]
